FAERS Safety Report 20372782 (Version 1)
Quarter: 2022Q1

REPORT INFORMATION
  Report Type: Spontaneous
  Country: IT (occurrence: IT)
  Receive Date: 20220125
  Receipt Date: 20220125
  Transmission Date: 20220423
  Serious: Yes (Death, Other)
  Sender: FDA-Public Use
  Company Number: IT-LUPIN PHARMACEUTICALS INC.-2022-00790

PATIENT
  Age: 28 Year
  Sex: Male

DRUGS (4)
  1. MORPHINE [Interacting]
     Active Substance: MORPHINE
     Indication: Palliative care
     Dosage: 1.5 MILLILITER PER HOUR, THE PATIENT RECEIVED MORPHINE, 100 MG AT 1.5 ML/H, WITH CONTINUOUS INFUSION
     Route: 065
  2. MORPHINE [Interacting]
     Active Substance: MORPHINE
     Dosage: 3 MG/3 ML INFUSION IN PHYSIOLOGICAL SOLUTION
     Route: 065
  3. MIDAZOLAM [Interacting]
     Active Substance: MIDAZOLAM
     Indication: Palliative sedation
     Dosage: 60 MILLIGRAM
     Route: 058
  4. ACETAMINOPHEN [Concomitant]
     Active Substance: ACETAMINOPHEN
     Indication: Palliative care
     Dosage: 1 GRAM
     Route: 042

REACTIONS (3)
  - Drug interaction [Fatal]
  - Cardiovascular insufficiency [Fatal]
  - Respiratory depression [Fatal]
